FAERS Safety Report 9606897 (Version 2)
Quarter: 2013Q4

REPORT INFORMATION
  Report Type: Spontaneous
  Country: US (occurrence: US)
  Receive Date: 20131008
  Receipt Date: 20131008
  Transmission Date: 20140711
  Serious: No
  Sender: FDA-Public Use
  Company Number: US-AMGEN-USASP2013062158

PATIENT
  Age: 56 Year
  Sex: Female
  Weight: 57.14 kg

DRUGS (1)
  1. PROLIA [Suspect]
     Indication: PRODUCT USED FOR UNKNOWN INDICATION
     Dosage: UNK 1 CC, Q6MO
     Route: 058
     Dates: start: 20130813

REACTIONS (5)
  - Abdominal discomfort [Unknown]
  - Gastrooesophageal reflux disease [Recovering/Resolving]
  - Bone pain [Not Recovered/Not Resolved]
  - Abdominal pain [Recovering/Resolving]
  - Diarrhoea [Recovering/Resolving]
